FAERS Safety Report 6227724-8 (Version None)
Quarter: 2009Q2

REPORT INFORMATION
  Report Type: 
  Country: None (occurrence: None)
  Receive Date: 20090612
  Receipt Date: 20090605
  Transmission Date: 20091009
  Serious: Yes (Hospitalization, Other)
  Sender: FDA-Public Use
  Company Number: US-PFIZER INC-2005040008

PATIENT
  Sex: Female

DRUGS (18)
  1. SILDENAFIL CITRATE [Suspect]
     Indication: PULMONARY HYPERTENSION
     Dosage: 20 MG, 3X/DAY
     Route: 048
     Dates: start: 20050301, end: 20050303
  2. *EPOPROSTENOL [Interacting]
     Indication: PULMONARY HYPERTENSION
     Dosage: 24.8 NG/KG/MIN
     Route: 042
     Dates: start: 20000301
  3. POTASSIUM CHLORIDE [Concomitant]
     Route: 048
     Dates: start: 20000101
  4. LEVOTHYROXINE [Concomitant]
     Route: 048
     Dates: start: 19990101
  5. BUPROPION HCL [Concomitant]
     Route: 048
     Dates: start: 20030101
  6. MAGNESIUM SULFATE [Concomitant]
     Route: 048
     Dates: start: 20000101
  7. LASIX [Concomitant]
     Route: 048
     Dates: start: 20000101
  8. WARFARIN SODIUM [Concomitant]
     Route: 048
     Dates: start: 20041001
  9. LISINOPRIL [Concomitant]
     Route: 048
     Dates: start: 19990101
  10. DIGOXIN [Concomitant]
     Route: 048
     Dates: start: 19990101
  11. PANTOPRAZOLE SODIUM [Concomitant]
     Route: 048
     Dates: start: 19990101
  12. GLIPIZIDE [Concomitant]
     Route: 048
     Dates: start: 19990101
  13. LOPRESSOR [Concomitant]
     Route: 048
     Dates: start: 20030101
  14. GOLD [Concomitant]
     Route: 048
     Dates: start: 20030401
  15. LIPITOR [Concomitant]
     Route: 048
     Dates: start: 19990101
  16. GEMFIBROZIL [Concomitant]
     Route: 048
     Dates: start: 20030101
  17. BECONASE [Concomitant]
     Route: 065
     Dates: start: 20040101
  18. OXYGEN [Concomitant]
     Route: 065
     Dates: start: 20000616

REACTIONS (3)
  - DRUG INTERACTION [None]
  - NAUSEA [None]
  - RASH [None]
